FAERS Safety Report 7581171-5 (Version None)
Quarter: 2011Q2

REPORT INFORMATION
  Report Type: 
  Country: None (occurrence: None)
  Receive Date: 20110629
  Receipt Date: 20110620
  Transmission Date: 20111010
  Serious: Yes (Hospitalization, Other)
  Sender: FDA-Public Use
  Company Number: JP-UCBSA-018472

PATIENT
  Sex: Female

DRUGS (19)
  1. REBAMIPIDE [Concomitant]
     Indication: GASTRIC ULCER HAEMORRHAGE
     Dates: start: 20090220, end: 20100915
  2. BETAMETHASONE VALERATE_GENTAMICIN [Concomitant]
     Dosage: ADEQUATE DOSE
     Dates: start: 20100407, end: 20100909
  3. CERTOLIZUMAB PEGOL [Suspect]
     Indication: RHEUMATOID ARTHRITIS
     Dosage: RA0006: WEEKS 0 TO 4.
     Route: 058
     Dates: start: 20090723, end: 20090101
  4. DICLOFENAC SODIUM [Concomitant]
     Dates: start: 20100108
  5. SULFASALAZINE [Concomitant]
     Dates: start: 20100529
  6. DEXAMETHASONE PROPIONATE [Concomitant]
     Dosage: BEDTIME DAILY; QS
     Dates: start: 20100519, end: 20100909
  7. DICLOFENAC SODIUM [Concomitant]
     Dosage: ADEQUATE DOSE
     Dates: start: 20090317
  8. ALENDRONATE SODIUM [Concomitant]
     Dates: start: 20100123
  9. AROTINOLOL HYDROCHLORIDE [Concomitant]
     Dates: start: 20050805
  10. CANDESARTAN CILEXETIL [Concomitant]
     Dates: start: 20100412
  11. INDOMETHACIN SODIUM [Concomitant]
     Dosage: ADEQUATE DOSE
     Dates: start: 20090512
  12. CERTOLIZUMAB PEGOL [Suspect]
     Dosage: RA0006: WEEKS 6 TO 22
     Route: 058
     Dates: start: 20100101, end: 20100121
  13. ELCATONIN [Concomitant]
     Dates: start: 20100121
  14. FAMOTIDINE [Concomitant]
     Dates: start: 20100108
  15. FEXOFENADINE HCL [Concomitant]
     Dates: start: 20100524, end: 20100909
  16. PREDNISOLONE [Concomitant]
     Dates: start: 20081219
  17. CERTOLIZUMAB PEGOL [Suspect]
     Route: 058
     Dates: start: 20100204, end: 20100819
  18. HEPARIN [Concomitant]
     Dosage: BEDTIME DAILY; QS
     Dates: start: 20100519, end: 20100909
  19. L-MENTHOL [Concomitant]
     Dosage: BEDTIME DAILY; QS
     Dates: start: 20100519, end: 20100909

REACTIONS (1)
  - NON-HODGKIN'S LYMPHOMA STAGE III [None]
